FAERS Safety Report 14610218 (Version 1)
Quarter: 2018Q1

REPORT INFORMATION
  Report Type: Spontaneous
  Country: ES (occurrence: ES)
  Receive Date: 20180307
  Receipt Date: 20180307
  Transmission Date: 20180509
  Serious: Yes (Other)
  Sender: FDA-Public Use
  Company Number: ES-PFIZER INC-2018094379

PATIENT
  Age: 55 Year
  Sex: Male

DRUGS (1)
  1. LORAZEPAM. [Suspect]
     Active Substance: LORAZEPAM
     Dosage: 1 MG, 2X/DAY (EVERY 12 HOURS)
     Dates: start: 20160801

REACTIONS (6)
  - Vertigo [Unknown]
  - Confusional state [Unknown]
  - Tremor [Unknown]
  - Amnesia [Unknown]
  - Visual impairment [Unknown]
  - Speech disorder [Unknown]

NARRATIVE: CASE EVENT DATE: 20160801
